FAERS Safety Report 4302549-9 (Version None)
Quarter: 2004Q1

REPORT INFORMATION
  Report Type: 
  Country: None (occurrence: None)
  Receive Date: 20040220
  Receipt Date: 20040127
  Transmission Date: 20041129
  Serious: Yes (Other)
  Sender: FDA-Public Use
  Company Number: A03200303040

PATIENT
  Age: 77 Year
  Sex: Male
  Weight: 81.6475 kg

DRUGS (2)
  1. ARIXTRA - FONDAPARINUX SODIUM - SOLUKTION - 2.5 MG [Suspect]
     Indication: HIP ARTHROPLASTY
     Dosage: 2.5 MG QD - SUBCUTANEOUS
     Route: 058
     Dates: start: 20031002, end: 20031001
  2. ARIXTRA - FONDAPARINUX SODIUM - SOLUKTION - 2.5 MG [Suspect]
     Indication: THROMBOSIS PROPHYLAXIS
     Dosage: 2.5 MG QD - SUBCUTANEOUS
     Route: 058
     Dates: start: 20031002, end: 20031001

REACTIONS (1)
  - DEEP VEIN THROMBOSIS [None]
